FAERS Safety Report 17000760 (Version 1)
Quarter: 2019Q4

REPORT INFORMATION
  Report Type: Spontaneous
  Country: US (occurrence: US)
  Receive Date: 20191106
  Receipt Date: 20191106
  Transmission Date: 20200122
  Serious: Yes (Hospitalization, Other)
  Sender: FDA-Public Use
  Company Number: US-PFIZER INC-2019469264

PATIENT
  Age: 23 Year
  Sex: Male
  Weight: 86.2 kg

DRUGS (27)
  1. THIAMINE. [Concomitant]
     Active Substance: THIAMINE
     Dosage: UNK
     Route: 042
  2. MAGNESIUM SULFATE. [Concomitant]
     Active Substance: MAGNESIUM SULFATE
     Dosage: UNK
     Route: 042
  3. INSULIN REGULAR HM [Concomitant]
     Active Substance: INSULIN NOS
     Dosage: UNK
     Route: 042
  4. ACETAZOLAMIDE. [Concomitant]
     Active Substance: ACETAZOLAMIDE
     Dosage: UNK
     Route: 042
  5. KETAMINE HCL [Suspect]
     Active Substance: KETAMINE HYDROCHLORIDE
     Indication: SEDATION
     Dosage: 200 MG, UNK
     Route: 040
  6. PIPERACILLIN AND TAZOBACTAM [Concomitant]
     Active Substance: PIPERACILLIN SODIUM\TAZOBACTAM SODIUM
     Indication: ASPIRATION
     Dosage: UNK
     Route: 042
  7. NOREPINEPHRINE. [Concomitant]
     Active Substance: NOREPINEPHRINE
     Indication: MEAN ARTERIAL PRESSURE
     Dosage: UNK
     Route: 042
  8. MIDAZOLAM [Concomitant]
     Active Substance: MIDAZOLAM HYDROCHLORIDE
     Dosage: UNK
     Route: 042
  9. DOCUSATE [Concomitant]
     Active Substance: DOCUSATE
     Dosage: UNK
     Route: 048
  10. EPINEPHRINE. [Concomitant]
     Active Substance: EPINEPHRINE
     Indication: MEAN ARTERIAL PRESSURE
     Dosage: UNK
     Route: 042
  11. HYDROCORTISONE. [Concomitant]
     Active Substance: HYDROCORTISONE
     Dosage: UNK
     Route: 042
  12. FENTANYL. [Concomitant]
     Active Substance: FENTANYL
     Indication: SEDATION
     Dosage: UNK
     Route: 042
  13. SENNA ACUTIFOLIA [Concomitant]
     Dosage: UNK
     Route: 048
  14. FUROSEMIDE. [Concomitant]
     Active Substance: FUROSEMIDE
     Dosage: 2.5- 10MG/H INFUSION
  15. KETAMINE HCL [Suspect]
     Active Substance: KETAMINE HYDROCHLORIDE
     Dosage: UNK, 0.35 MG/KG/H, WAS INITIATED 14 HOURS AFTER ECMO BEGAN, INFUSION
     Route: 042
  16. ROCURONIUM [Concomitant]
     Active Substance: ROCURONIUM BROMIDE
     Indication: MUSCULOSKELETAL INJURY
     Dosage: UNK
     Route: 042
  17. VANCOMYCIN [Concomitant]
     Active Substance: VANCOMYCIN
     Indication: ASPIRATION
     Dosage: UNK
     Route: 042
  18. HYDROMORPHONE [Concomitant]
     Active Substance: HYDROMORPHONE
     Indication: SEDATION
     Dosage: UNK
     Route: 042
  19. POLYETHYLENE GLYCOL [Concomitant]
     Active Substance: POLYETHYLENE GLYCOLS
     Dosage: UNK
     Route: 048
  20. PROPOFOL. [Concomitant]
     Active Substance: PROPOFOL
     Indication: SEDATION
     Dosage: UNK
     Route: 042
  21. ASCORBIC ACID. [Concomitant]
     Active Substance: ASCORBIC ACID
     Dosage: UNK
     Route: 042
  22. FUROSEMIDE. [Concomitant]
     Active Substance: FUROSEMIDE
     Dosage: 2.5- 10MG/H INFUSION
  23. HEPARIN [Concomitant]
     Active Substance: HEPARIN SODIUM
     Dosage: UNK
     Route: 042
  24. DEXMEDETOMIDINE. [Concomitant]
     Active Substance: DEXMEDETOMIDINE
     Dosage: UNK
     Route: 042
  25. PANTOPRAZOLE [Concomitant]
     Active Substance: PANTOPRAZOLE
     Dosage: UNK
     Route: 042
  26. INSULIN LISPRO [Concomitant]
     Active Substance: INSULIN LISPRO
     Route: 058
  27. POTASSIUM CHLORIDE. [Concomitant]
     Active Substance: POTASSIUM CHLORIDE
     Dosage: UNK
     Route: 042

REACTIONS (1)
  - Diabetes insipidus [Recovering/Resolving]
